FAERS Safety Report 14579937 (Version 2)
Quarter: 2018Q1

REPORT INFORMATION
  Report Type: Spontaneous
  Country: US (occurrence: US)
  Receive Date: 20180228
  Receipt Date: 20180321
  Transmission Date: 20180509
  Serious: Yes (Hospitalization)
  Sender: FDA-Public Use
  Company Number: US-ACCORD-063757

PATIENT
  Age: 54 Year
  Sex: Male

DRUGS (12)
  1. LAMOTRIGINE. [Concomitant]
     Active Substance: LAMOTRIGINE
     Dosage: ALSO RECEIVED 200 MG DAILY
  2. LEVOTHYROXINE. [Concomitant]
     Active Substance: LEVOTHYROXINE
  3. BENZATROPINE [Concomitant]
     Active Substance: BENZTROPINE
  4. SODIUM BICARBONATE. [Concomitant]
     Active Substance: SODIUM BICARBONATE
  5. NIFEDIPINE. [Concomitant]
     Active Substance: NIFEDIPINE
  6. CETIRIZINE [Concomitant]
     Active Substance: CETIRIZINE HYDROCHLORIDE
  7. PANCRELIPASE. [Concomitant]
     Active Substance: PANCRELIPASE
  8. CLOZAPINE. [Suspect]
     Active Substance: CLOZAPINE
     Indication: SCHIZOAFFECTIVE DISORDER
     Dosage: DOSE REDUCE TO 250 MG DAILY, NIGHTLY
     Dates: start: 2017
  9. METOPROLOL. [Concomitant]
     Active Substance: METOPROLOL
     Dosage: ALSO RECEIVED 50 MG DAILY
  10. FENOFIBRATE. [Concomitant]
     Active Substance: FENOFIBRATE
     Dosage: MICRONIZED
  11. CLONAZEPAM. [Concomitant]
     Active Substance: CLONAZEPAM
  12. FAMOTIDINE. [Concomitant]
     Active Substance: FAMOTIDINE

REACTIONS (4)
  - Metabolic acidosis [Recovered/Resolved]
  - Colitis microscopic [Recovered/Resolved]
  - Hypokalaemia [Unknown]
  - Acute kidney injury [Unknown]

NARRATIVE: CASE EVENT DATE: 2017
